FAERS Safety Report 19924939 (Version 2)
Quarter: 2022Q1

REPORT INFORMATION
  Report Type: Spontaneous
  Country: US (occurrence: US)
  Receive Date: 20211006
  Receipt Date: 20220128
  Transmission Date: 20220423
  Serious: Yes (Hospitalization, Other)
  Sender: FDA-Public Use
  Company Number: US-ALVOGEN-2021-ALVOGEN-117615

PATIENT
  Age: 9 Month
  Sex: Male

DRUGS (1)
  1. FENTANYL [Suspect]
     Active Substance: FENTANYL
     Indication: Pain
     Dosage: MCG/HR

REACTIONS (10)
  - Hypoxia [Recovering/Resolving]
  - Hypothermia [Recovering/Resolving]
  - Lethargy [Recovering/Resolving]
  - Hypoglycaemia [Recovering/Resolving]
  - Somnolence [Recovering/Resolving]
  - Bradycardia [Recovering/Resolving]
  - Hypokinesia [Recovering/Resolving]
  - Hydrocephalus [Recovering/Resolving]
  - Toxicity to various agents [Recovering/Resolving]
  - Brain oedema [Recovering/Resolving]
